FAERS Safety Report 19029871 (Version 4)
Quarter: 2022Q2

REPORT INFORMATION
  Report Type: Spontaneous
  Country: US (occurrence: None)
  Receive Date: 20210318
  Receipt Date: 20220422
  Transmission Date: 20220721
  Serious: Yes (Hospitalization, Other)
  Sender: FDA-Public Use
  Company Number: 2018SF34925

PATIENT
  Age: 61 Year
  Sex: Male
  Weight: 93.9 kg

DRUGS (34)
  1. PRILOSEC [Suspect]
     Active Substance: OMEPRAZOLE MAGNESIUM
     Indication: Dyspepsia
     Dosage: 20.0MG UNKNOWN
     Route: 048
     Dates: start: 2001, end: 2018
  2. PRILOSEC [Suspect]
     Active Substance: OMEPRAZOLE MAGNESIUM
     Indication: Dyspepsia
     Dosage: GENERIC20.0MG UNKNOWN
     Route: 065
     Dates: start: 2016, end: 2018
  3. PRILOSEC OTC [Suspect]
     Active Substance: OMEPRAZOLE MAGNESIUM
     Indication: Dyspepsia
     Route: 048
     Dates: start: 2003, end: 2018
  4. SIMVASTATIN [Concomitant]
     Active Substance: SIMVASTATIN
     Indication: Blood cholesterol increased
     Dates: start: 2016, end: 2020
  5. AMOXICILLIN [Concomitant]
     Active Substance: AMOXICILLIN
     Indication: Infection
     Dates: start: 2010
  6. AMOXICILLIN [Concomitant]
     Active Substance: AMOXICILLIN
     Indication: Infection
     Dates: start: 2019
  7. AZITHROMYCIN [Concomitant]
     Active Substance: AZITHROMYCIN
     Indication: Infection
     Dates: start: 2011
  8. AZITHROMYCIN [Concomitant]
     Active Substance: AZITHROMYCIN
     Indication: Infection
     Dates: start: 2012
  9. AZITHROMYCIN [Concomitant]
     Active Substance: AZITHROMYCIN
     Indication: Infection
     Dates: start: 2019
  10. CIPROFLOXACIN [Concomitant]
     Active Substance: CIPROFLOXACIN
     Indication: Infection
     Dates: start: 2009
  11. NAPROXEN [Concomitant]
     Active Substance: NAPROXEN
     Indication: Pain
     Dates: start: 2016
  12. LISINOPRIL [Concomitant]
     Active Substance: LISINOPRIL
     Indication: Hypertension
     Dates: start: 2016, end: 2017
  13. ALLOPURINOL [Concomitant]
     Active Substance: ALLOPURINOL
     Indication: Blood uric acid decreased
     Dates: start: 2016
  14. DICLOFENAC [Concomitant]
     Active Substance: DICLOFENAC
     Indication: Pain
     Dates: start: 2017
  15. RANITIDINE [Concomitant]
     Active Substance: RANITIDINE
     Dates: start: 2018, end: 2020
  16. PHENERGAN [Concomitant]
     Active Substance: PROMETHAZINE HYDROCHLORIDE
     Dates: start: 2018, end: 2020
  17. AMLODIPINE [Concomitant]
     Active Substance: AMLODIPINE BESYLATE
  18. BISACODYL [Concomitant]
     Active Substance: BISACODYL
  19. DOXAZOSIN [Concomitant]
     Active Substance: DOXAZOSIN MESYLATE
  20. FAMOTIDINE [Concomitant]
     Active Substance: FAMOTIDINE
  21. FUROSEMIDE [Concomitant]
     Active Substance: FUROSEMIDE
  22. HALOPERIDOL [Concomitant]
     Active Substance: HALOPERIDOL
  23. HEPARIN [Concomitant]
     Active Substance: HEPARIN SODIUM
  24. LEVALBUTEROL [Concomitant]
     Active Substance: LEVALBUTEROL
  25. LEVOFLOXACIN [Concomitant]
     Active Substance: LEVOFLOXACIN
  26. VANCOMYCIN [Concomitant]
     Active Substance: VANCOMYCIN
  27. ERTAPENEM [Concomitant]
     Active Substance: ERTAPENEM
  28. PREDNISONE [Concomitant]
     Active Substance: PREDNISONE
  29. AMARYL [Concomitant]
     Active Substance: GLIMEPIRIDE
  30. MYCOLOG [Concomitant]
     Active Substance: GRAMICIDIN\NEOMYCIN SULFATE\NYSTATIN\TRIAMCINOLONE ACETONIDE
  31. KENALOG [Concomitant]
     Active Substance: TRIAMCINOLONE ACETONIDE
  32. NYSTATIN [Concomitant]
     Active Substance: NYSTATIN
  33. ULORIC [Concomitant]
     Active Substance: FEBUXOSTAT
  34. PERCOCET [Concomitant]
     Active Substance: ACETAMINOPHEN\OXYCODONE HYDROCHLORIDE

REACTIONS (6)
  - Chronic kidney disease [Not Recovered/Not Resolved]
  - Acute kidney injury [Not Recovered/Not Resolved]
  - End stage renal disease [Not Recovered/Not Resolved]
  - Nephrogenic anaemia [Unknown]
  - Tubulointerstitial nephritis [Not Recovered/Not Resolved]
  - Renal failure [Unknown]

NARRATIVE: CASE EVENT DATE: 20150101
